FAERS Safety Report 14671560 (Version 1)
Quarter: 2018Q1

REPORT INFORMATION
  Report Type: Spontaneous
  Country: US (occurrence: US)
  Receive Date: 20180323
  Receipt Date: 20180323
  Transmission Date: 20180509
  Serious: No
  Sender: FDA-Public Use
  Company Number: US-009507513-1803USA008454

PATIENT
  Sex: Female

DRUGS (1)
  1. NEXPLANON [Suspect]
     Active Substance: ETONOGESTREL
     Indication: CONTRACEPTION
     Dosage: 1 DF, EVERY 3 YEARS IN LEFT ARM
     Route: 059
     Dates: start: 2017

REACTIONS (2)
  - Dizziness [Unknown]
  - Menorrhagia [Unknown]

NARRATIVE: CASE EVENT DATE: 2017
